FAERS Safety Report 6336896-6 (Version None)
Quarter: 2009Q3

REPORT INFORMATION
  Report Type: 
  Country: None (occurrence: None)
  Receive Date: 20090901
  Receipt Date: 20090825
  Transmission Date: 20100115
  Serious: Yes (Other)
  Sender: FDA-Public Use
  Company Number: PHHY2009BR35939

PATIENT
  Sex: Female
  Weight: 55 kg

DRUGS (16)
  1. FORADIL [Suspect]
     Dosage: UNK
  2. ALDACTONE [Concomitant]
     Dosage: 25 MG, QD
     Route: 048
  3. DIGOXIN [Concomitant]
     Dosage: 0.25 MG,HALF A TABLET DAILY
     Route: 048
  4. COVERSYL [Concomitant]
     Dosage: 1 TABLET IN THE MORNING
     Route: 048
  5. ICTUS [Concomitant]
     Dosage: 3 TABLETS DAILY
     Route: 048
  6. SUSTRATE [Concomitant]
     Dosage: 10 MG, TID
     Route: 048
  7. LASIX [Concomitant]
     Dosage: 40 MG, BID
     Route: 048
  8. MAREVAN [Concomitant]
     Dosage: 1 TABLET DAILY FOR 2 DAYS AND HALF A TABLET DAILY FOR 5 DAYS
     Route: 048
  9. SUPAN [Concomitant]
     Indication: ANXIETY
     Dosage: 1 TABLET DAILY
  10. PHARMATON [Concomitant]
     Dosage: 1 CAPSULE AFTER THE LUNCH
     Route: 048
  11. COBAVITAL [Concomitant]
     Indication: APPETITE DISORDER
     Dosage: 1 CAPSULE AT NIGHT
  12. TYLENOL (CAPLET) [Concomitant]
  13. TRAMADOL HCL [Concomitant]
     Dosage: THRICE A DAY
     Dates: start: 20090823
  14. TRAMADOL HCL [Concomitant]
     Dosage: 1 TABLET
     Dates: start: 20090824
  15. TRAMADOL HCL [Concomitant]
     Dosage: 1 TABLET
     Dates: start: 20090825
  16. OMEPRAZOLE [Concomitant]
     Dosage: 1 CAPSULE DAILY, PRN
     Route: 048

REACTIONS (2)
  - CHEST PAIN [None]
  - INFARCTION [None]
